FAERS Safety Report 10070206 (Version 1)
Quarter: 2014Q2

REPORT INFORMATION
  Report Type: Spontaneous
  Country: US (occurrence: US)
  Receive Date: 20140410
  Receipt Date: 20140410
  Transmission Date: 20141212
  Serious: Yes (Other)
  Sender: FDA-Public Use
  Company Number: US-ASTRAZENECA-2014SE23920

PATIENT
  Sex: Female

DRUGS (1)
  1. ENTOCORT EC [Suspect]
     Dosage: UNKNOWN UNK
     Route: 048

REACTIONS (6)
  - Neoplasm malignant [Unknown]
  - Choking [Unknown]
  - Hearing impaired [Unknown]
  - Diarrhoea [Unknown]
  - Colitis microscopic [Unknown]
  - Intentional product misuse [Unknown]
